FAERS Safety Report 4546539-X (Version None)
Quarter: 2005Q1

REPORT INFORMATION
  Report Type: 
  Country: None (occurrence: None)
  Receive Date: 20050103
  Receipt Date: 20041228
  Transmission Date: 20050727
  Serious: Yes (Other)
  Sender: FDA-Public Use
  Company Number: 2004118839

PATIENT
  Age: 72 Year
  Sex: Male

DRUGS (7)
  1. LIPITOR [Suspect]
     Indication: HYPERLIPIDAEMIA
     Dosage: 10 MG 91 IN 1 D), ORAL
     Route: 048
     Dates: start: 20000801
  2. PIOGLITAZONE HCL [Suspect]
     Indication: ILL-DEFINED DISORDER
     Dosage: 30 MCG (1 IN 1 D), ORAL
     Route: 048
     Dates: start: 20040801, end: 20041219
  3. TICLOPIDINE HYDROCHLORIDE (TICLOPIDINE HYDROCHLORIDE0 [Concomitant]
  4. URSODEOXYCHOLIC ACID (URSODEOXYCHOLIC ACID) [Concomitant]
  5. ORIPRENALINE SULFATE (ORCIPRENALINE SULFATE) [Concomitant]
  6. LOSARTAN POTASSIUM [Concomitant]
  7. GLICLAZIDE (GLICLAZIDE) [Concomitant]

REACTIONS (1)
  - WHITE BLOOD CELL COUNT DECREASED [None]
